FAERS Safety Report 7874776-5 (Version None)
Quarter: 2011Q4

REPORT INFORMATION
  Report Type: 
  Country: None (occurrence: None)
  Receive Date: 20111031
  Receipt Date: 20111019
  Transmission Date: 20120403
  Serious: Yes (Other)
  Sender: FDA-Public Use
  Company Number: CA-ELI_LILLY_AND_COMPANY-CA201110004953

PATIENT
  Sex: Female

DRUGS (2)
  1. HUMULIN N [Suspect]
     Indication: DIABETES MELLITUS
     Dosage: 36 U, EACH MORNING
  2. HUMULIN N [Suspect]
     Dosage: 15 U, EACH EVENING
     Dates: start: 19710101

REACTIONS (4)
  - MEMORY IMPAIRMENT [None]
  - BREAST CANCER [None]
  - CHRONIC MYELOID LEUKAEMIA [None]
  - THYROID DISORDER [None]
